FAERS Safety Report 17535879 (Version 1)
Quarter: 2020Q1

REPORT INFORMATION
  Report Type: Spontaneous
  Country: US (occurrence: US)
  Receive Date: 20200313
  Receipt Date: 20200313
  Transmission Date: 20200409
  Serious: Yes (Other)
  Sender: FDA-Public Use
  Company Number: US-SA-2020SA061934

PATIENT

DRUGS (1)
  1. ZANTAC [Suspect]
     Active Substance: RANITIDINE HYDROCHLORIDE
     Dosage: ONCE OR TWICE A DAY PER WEEK
     Route: 065
     Dates: start: 2005, end: 2008

REACTIONS (4)
  - Throat cancer [Unknown]
  - Nasal cavity cancer [Unknown]
  - Anxiety [Unknown]
  - Oesophageal carcinoma [Unknown]

NARRATIVE: CASE EVENT DATE: 2006
